FAERS Safety Report 23681475 (Version 1)
Quarter: 2024Q1

REPORT INFORMATION
  Report Type: Spontaneous
  Country: GB (occurrence: GB)
  Receive Date: 20240328
  Receipt Date: 20240328
  Transmission Date: 20240410
  Serious: Yes (Other)
  Sender: FDA-Public Use
  Company Number: None

PATIENT
  Age: 76 Year
  Sex: Female
  Weight: 59 kg

DRUGS (4)
  1. ALENDRONIC ACID [Suspect]
     Active Substance: ALENDRONIC ACID
     Indication: Adverse drug reaction
     Dosage: 70MG ONCE A WEEK; TEVA UK ALENDRONIC ACID
     Route: 065
     Dates: start: 20231201, end: 20240313
  2. ATORVASTATIN [Concomitant]
     Active Substance: ATORVASTATIN
     Indication: Adverse drug reaction
     Route: 065
  3. CALCIUM CARBONATE\CHOLECALCIFEROL [Concomitant]
     Active Substance: CALCIUM CARBONATE\CHOLECALCIFEROL
     Indication: Product used for unknown indication
     Route: 065
  4. ALENDRONATE SODIUM [Suspect]
     Active Substance: ALENDRONATE SODIUM
     Indication: Adverse drug reaction
     Dosage: 70MG
     Route: 065
     Dates: start: 20240206, end: 20240313

REACTIONS (2)
  - Arthritis [Recovered/Resolved]
  - Monoplegia [Recovered/Resolved]

NARRATIVE: CASE EVENT DATE: 20240308
